FAERS Safety Report 4431265-8 (Version None)
Quarter: 2004Q3

REPORT INFORMATION
  Report Type: 
  Country: None (occurrence: None)
  Receive Date: 20040823
  Receipt Date: 20040823
  Transmission Date: 20050211
  Serious: Yes (Death, Life-Threatening, Hospitalization)
  Sender: FDA-Public Use
  Company Number: None

PATIENT
  Age: 52 Year
  Sex: Male
  Weight: 36.2878 kg

DRUGS (8)
  1. VIREAD [Suspect]
     Indication: ACQUIRED IMMUNODEFICIENCY SYNDROME
     Dosage: 300MG  QD  ORAL
     Route: 048
     Dates: start: 20030630, end: 20031006
  2. VALGANCICLOVIR [Suspect]
     Indication: CYTOMEGALOVIRUS INFECTION
     Dosage: 900MG  QD  ORAL
     Route: 048
     Dates: start: 20010801, end: 20031031
  3. KALETRA [Concomitant]
  4. EPIVIR [Concomitant]
  5. DELAVIRDINE [Concomitant]
  6. FLUCONAZOLE [Concomitant]
  7. MEPRON [Concomitant]
  8. FUZEON [Concomitant]

REACTIONS (1)
  - MEDICATION ERROR [None]
